FAERS Safety Report 11513698 (Version 1)
Quarter: 2015Q3

REPORT INFORMATION
  Report Type: Spontaneous
  Country: US (occurrence: US)
  Receive Date: 20150903
  Receipt Date: 20150903
  Transmission Date: 20151125
  Serious: No
  Sender: FDA-Public Use
  Company Number: US-ELI_LILLY_AND_COMPANY-US201210000133

PATIENT
  Age: 64 Year
  Sex: Female

DRUGS (4)
  1. CYMBALTA [Suspect]
     Active Substance: DULOXETINE HYDROCHLORIDE
     Dosage: 60 MG, QD
     Dates: start: 20120404
  2. CYMBALTA [Suspect]
     Active Substance: DULOXETINE HYDROCHLORIDE
     Indication: BACK PAIN
     Dosage: 30 MG, QD
     Dates: start: 20120328
  3. CYMBALTA [Suspect]
     Active Substance: DULOXETINE HYDROCHLORIDE
     Dosage: 30 MG, QD
     Dates: start: 20120905, end: 20120912
  4. NAPROXEN. [Concomitant]
     Active Substance: NAPROXEN
     Indication: FOOT DEFORMITY
     Dosage: UNK
     Dates: start: 20120821

REACTIONS (5)
  - Restless legs syndrome [Recovered/Resolved]
  - Intervertebral disc protrusion [Unknown]
  - Foot deformity [Unknown]
  - Insomnia [Unknown]
  - Back pain [Unknown]
